FAERS Safety Report 5013477-8 (Version None)
Quarter: 2006Q2

REPORT INFORMATION
  Report Type: 
  Country: None (occurrence: None)
  Receive Date: 20060530
  Receipt Date: 20060523
  Transmission Date: 20061013
  Serious: Yes (Other)
  Sender: FDA-Public Use
  Company Number: 2006AP02337

PATIENT
  Age: 78 Year
  Sex: Female

DRUGS (9)
  1. XYLOCAINE [Suspect]
     Indication: ANAESTHESIA
     Route: 065
     Dates: start: 20031031
  2. XYLOCAINE [Suspect]
     Route: 065
     Dates: start: 20031031
  3. XYLOCAINE [Suspect]
     Indication: LOCAL ANAESTHESIA
     Route: 065
     Dates: start: 20031031
  4. XYLOCAINE [Suspect]
     Route: 065
     Dates: start: 20031031
  5. XYLOCAINE [Suspect]
     Route: 065
     Dates: start: 20031031
  6. XYLOCAINE [Suspect]
     Route: 065
     Dates: start: 20031031
  7. XYLOCAINE [Suspect]
     Route: 042
     Dates: start: 20031031
  8. XYLOCAINE [Suspect]
     Route: 042
     Dates: start: 20031031
  9. XYLOCAINE [Suspect]
     Route: 042
     Dates: start: 20031031

REACTIONS (1)
  - DEPRESSED LEVEL OF CONSCIOUSNESS [None]
